FAERS Safety Report 5441298-0 (Version None)
Quarter: 2007Q3

REPORT INFORMATION
  Report Type: 
  Country: None (occurrence: None)
  Receive Date: 20070903
  Receipt Date: 20070824
  Transmission Date: 20080115
  Serious: Yes (Congenital Anomaly)
  Sender: FDA-Public Use
  Company Number: US-MERCK-0708USA04748B1

PATIENT
  Age: 0 Day
  Sex: Male
  Weight: 3 kg

DRUGS (4)
  1. SINGULAIR [Suspect]
     Route: 064
     Dates: start: 20050720
  2. PULMICORT [Concomitant]
     Route: 064
     Dates: start: 20050820
  3. ALBUTEROL [Concomitant]
     Route: 064
  4. ZYRTEC [Concomitant]
     Route: 064

REACTIONS (2)
  - CHORDEE [None]
  - HYPOSPADIAS [None]
